FAERS Safety Report 24273150 (Version 1)
Quarter: 2024Q3

REPORT INFORMATION
  Report Type: Spontaneous
  Country: CN (occurrence: CN)
  Receive Date: 20240902
  Receipt Date: 20240902
  Transmission Date: 20241016
  Serious: Yes (Hospitalization, Other)
  Sender: Haleon PLC
  Company Number: CN-HALEON-2194370

PATIENT
  Age: 32 Year
  Sex: Male
  Weight: 90 kg

DRUGS (4)
  1. IBUPROFEN [Suspect]
     Active Substance: IBUPROFEN
     Indication: Nasopharyngitis
     Route: 048
     Dates: start: 20240814, end: 20240815
  2. ACETAMINOPHEN\ASPIRIN\CAFFEINE [Suspect]
     Active Substance: ACETAMINOPHEN\ASPIRIN\CAFFEINE
     Indication: Nasopharyngitis
     Route: 048
     Dates: start: 20240815, end: 20240815
  3. IBUPROFEN ARGININE [Suspect]
     Active Substance: IBUPROFEN ARGININE
     Indication: Nasopharyngitis
     Dosage: 0.8G PO QD
     Route: 048
     Dates: start: 20240814, end: 20240815
  4. AMOXICILLIN [Suspect]
     Active Substance: AMOXICILLIN
     Indication: Upper respiratory tract infection
     Dosage: 0.5G PO QD
     Route: 048
     Dates: start: 20240815, end: 20240815

REACTIONS (12)
  - Acute kidney injury [Unknown]
  - Hyperuricaemia [Unknown]
  - Dry mouth [Recovering/Resolving]
  - Thirst [Unknown]
  - Urine output increased [Recovering/Resolving]
  - Asthenia [Unknown]
  - Headache [Unknown]
  - Vomiting [Unknown]
  - Blood creatinine increased [Unknown]
  - Product use issue [Unknown]
  - Hepatic steatosis [Unknown]
  - Renal injury [Unknown]

NARRATIVE: CASE EVENT DATE: 20240815
